FAERS Safety Report 9920906 (Version 2)
Quarter: 2014Q1

REPORT INFORMATION
  Report Type: Report from Study
  Country: CA (occurrence: CA)
  Receive Date: 20140225
  Receipt Date: 20140225
  Transmission Date: 20141002
  Serious: Yes (Other)
  Sender: FDA-Public Use
  Company Number: CA-ROCHE-1209513

PATIENT
  Age: 71 Year
  Sex: Male
  Weight: 83.9 kg

DRUGS (23)
  1. RITUXAN [Suspect]
     Indication: GRANULOMATOSIS WITH POLYANGIITIS
     Route: 042
     Dates: start: 20120926
  2. RITUXAN [Suspect]
     Dosage: DAY 15
     Route: 042
     Dates: start: 20130501
  3. RITUXAN [Suspect]
     Dosage: DAY 15
     Route: 042
     Dates: start: 20131113
  4. DIPHENHYDRAMINE HCL [Concomitant]
     Route: 048
     Dates: start: 20120926
  5. ACETAMINOPHEN [Concomitant]
     Route: 048
     Dates: start: 20120926
  6. METHYLPREDNISOLONE [Concomitant]
     Route: 042
     Dates: start: 20120926
  7. ATIVAN [Concomitant]
  8. VITAMIN B12 [Concomitant]
  9. ASAPHEN [Concomitant]
  10. SPIRIVA [Concomitant]
  11. SEREVENT [Concomitant]
  12. GLYBURIDE [Concomitant]
  13. FOSAVANCE [Concomitant]
  14. CARBOCAL D [Concomitant]
  15. PANTOLOC [Concomitant]
  16. PROTRIN DF [Concomitant]
  17. METFORMIN [Concomitant]
  18. VITAMIN C [Concomitant]
  19. PREDNISONE [Concomitant]
     Route: 065
  20. PREDNISONE [Concomitant]
     Route: 065
  21. PREDNISONE [Concomitant]
     Route: 065
  22. PREDNISONE [Concomitant]
     Route: 065
  23. PREDNISONE [Concomitant]
     Route: 065

REACTIONS (8)
  - Pain [Unknown]
  - Rash [Recovered/Resolved]
  - Rash [Recovered/Resolved]
  - Rash [Recovered/Resolved]
  - Eczema [Unknown]
  - Hypoaesthesia [Recovered/Resolved]
  - Road traffic accident [Unknown]
  - Sternal fracture [Recovering/Resolving]
